FAERS Safety Report 13536081 (Version 1)
Quarter: 2017Q2

REPORT INFORMATION
  Report Type: Spontaneous
  Country: ES (occurrence: ES)
  Receive Date: 20170511
  Receipt Date: 20170511
  Transmission Date: 20170830
  Serious: Yes (Hospitalization, Other)
  Sender: FDA-Public Use
  Company Number: ES-MYLANLABS-2017M1028171

PATIENT

DRUGS (1)
  1. LEVOTHYROXINE. [Suspect]
     Active Substance: LEVOTHYROXINE
     Indication: SUICIDE ATTEMPT
     Dosage: 75 TABLETS OF 75 MCG
     Route: 048

REACTIONS (9)
  - Intentional overdose [Recovered/Resolved]
  - Lethargy [Unknown]
  - Electrocardiogram J wave increased [Recovered/Resolved]
  - Suicide attempt [Recovered/Resolved]
  - Dyspnoea [Recovered/Resolved]
  - Dysarthria [Unknown]
  - Atrial flutter [Recovered/Resolved]
  - Gait disturbance [Unknown]
  - Atrioventricular block first degree [Recovered/Resolved]
